FAERS Safety Report 10188330 (Version 1)
Quarter: 2014Q2

REPORT INFORMATION
  Report Type: Spontaneous
  Country: US (occurrence: None)
  Receive Date: 20140521
  Receipt Date: 20140521
  Transmission Date: 20141212
  Serious: Yes (Hospitalization)
  Sender: FDA-Public Use
  Company Number: None

PATIENT
  Age: 23 Year
  Sex: Female
  Weight: 79.38 kg

DRUGS (1)
  1. NEXPLANON [Suspect]
     Dates: start: 20131202, end: 20140502

REACTIONS (6)
  - Hypoaesthesia [None]
  - Hypoaesthesia [None]
  - Chest pain [None]
  - Device deployment issue [None]
  - Device difficult to use [None]
  - Procedural pain [None]
